FAERS Safety Report 18160657 (Version 1)
Quarter: 2020Q3

REPORT INFORMATION
  Report Type: Spontaneous
  Country: GB (occurrence: GB)
  Receive Date: 20200818
  Receipt Date: 20200818
  Transmission Date: 20201103
  Serious: Yes (Hospitalization, Other)
  Sender: FDA-Public Use
  Company Number: GB-LUPIN PHARMACEUTICALS INC.-2020-04721

PATIENT
  Age: 47 Year
  Sex: Female

DRUGS (6)
  1. SIMVASTATIN. [Concomitant]
     Active Substance: SIMVASTATIN
     Indication: PRODUCT USED FOR UNKNOWN INDICATION
     Dosage: UNK
     Route: 065
  2. PARACETAMOL [Concomitant]
     Active Substance: ACETAMINOPHEN
     Indication: PRODUCT USED FOR UNKNOWN INDICATION
     Dosage: UNK
     Route: 065
  3. LOSARTAN. [Suspect]
     Active Substance: LOSARTAN
     Indication: HYPERTENSION
     Dosage: UNK
     Route: 065
  4. CALCIUM ACETATE. [Suspect]
     Active Substance: CALCIUM ACETATE
     Indication: DYSPEPSIA
     Dosage: UNK UNK, QD
     Route: 048
  5. BUPRENORPHINE. [Concomitant]
     Active Substance: BUPRENORPHINE
     Indication: ANALGESIC THERAPY
     Dosage: UNK
     Route: 065
  6. CALCIUM ACETATE. [Suspect]
     Active Substance: CALCIUM ACETATE
     Dosage: 9 DOSAGE FORM, QD (INGESTING UP TO NINE TABLETS DAILY; TOTAL DOSE: 4500MG)
     Route: 048

REACTIONS (7)
  - Nephrocalcinosis [Unknown]
  - Nephrolithiasis [Unknown]
  - Renal impairment [Unknown]
  - Stag horn calculus [Unknown]
  - Hypercalcaemia [Recovered/Resolved]
  - Blood parathyroid hormone decreased [Recovered/Resolved]
  - Milk-alkali syndrome [Unknown]
